FAERS Safety Report 19567865 (Version 1)
Quarter: 2021Q3

REPORT INFORMATION
  Report Type: Spontaneous
  Country: JP (occurrence: JP)
  Receive Date: 20210715
  Receipt Date: 20210715
  Transmission Date: 20211014
  Serious: Yes (Death)
  Sender: FDA-Public Use
  Company Number: JP-PFIZER INC-2021845298

PATIENT
  Age: 67 Year
  Sex: Male

DRUGS (5)
  1. IRINOTECAN HCL [Suspect]
     Active Substance: IRINOTECAN HYDROCHLORIDE
     Indication: ADULT T-CELL LYMPHOMA/LEUKAEMIA
     Dosage: UNK UNK, CYCLIC
  2. ETOPOSIDE. [Suspect]
     Active Substance: ETOPOSIDE
     Indication: ADULT T-CELL LYMPHOMA/LEUKAEMIA
     Dosage: UNK, CYCLIC
  3. CARBOPLATIN. [Suspect]
     Active Substance: CARBOPLATIN
     Indication: ADULT T-CELL LYMPHOMA/LEUKAEMIA
     Dosage: UNK UNK, CYCLIC
  4. VINDESINE [Suspect]
     Active Substance: VINDESINE
     Indication: ADULT T-CELL LYMPHOMA/LEUKAEMIA
     Dosage: UNK, CYCLIC
  5. PREDNISONE. [Suspect]
     Active Substance: PREDNISONE
     Indication: ADULT T-CELL LYMPHOMA/LEUKAEMIA
     Dosage: UNK

REACTIONS (1)
  - Varicella zoster virus infection [Fatal]
